FAERS Safety Report 4937746-2 (Version None)
Quarter: 2006Q1

REPORT INFORMATION
  Report Type: 
  Country: None (occurrence: None)
  Receive Date: 20060306
  Receipt Date: 20060222
  Transmission Date: 20060701
  Serious: Yes (Other)
  Sender: FDA-Public Use
  Company Number: S06-USA-00597-01

PATIENT
  Age: 16 Year
  Sex: Female

DRUGS (7)
  1. LEXAPRO [Suspect]
     Indication: DEPRESSION
     Dosage: 20 MG QD PO
     Route: 048
     Dates: start: 20030701, end: 20040201
  2. LEXAPRO [Suspect]
     Indication: DEPRESSION
     Dosage: 5 MG QD PO
     Route: 048
     Dates: start: 20030701, end: 20030701
  3. LEXAPRO [Suspect]
     Indication: DEPRESSION
     Dosage: 10 MG QD PO
     Route: 048
     Dates: start: 20030701, end: 20030701
  4. LEXAPRO [Suspect]
     Indication: DEPRESSION
     Dosage: 15 MG QD PO
     Route: 048
     Dates: start: 20030701, end: 20030701
  5. LEXAPRO [Suspect]
     Indication: DEPRESSION
     Dosage: 15 MG QD PO
     Route: 048
     Dates: start: 20040201, end: 20040201
  6. LEXAPRO [Suspect]
     Indication: DEPRESSION
     Dosage: 10 MG QD PO
     Route: 048
     Dates: start: 20040201, end: 20040201
  7. LEXAPRO [Suspect]
     Indication: DEPRESSION
     Dosage: 5 MG QD PO
     Route: 048
     Dates: start: 20040201, end: 20040301

REACTIONS (11)
  - AFFECT LABILITY [None]
  - COMPLETED SUICIDE [None]
  - DISEASE RECURRENCE [None]
  - FEAR [None]
  - HALLUCINATION, AUDITORY [None]
  - INFLUENZA LIKE ILLNESS [None]
  - INJURY ASPHYXIATION [None]
  - NEPHROLITHIASIS [None]
  - OBSESSIVE THOUGHTS [None]
  - SCRATCH [None]
  - TREATMENT NONCOMPLIANCE [None]
